FAERS Safety Report 9677218 (Version 1)
Quarter: 2013Q4

REPORT INFORMATION
  Report Type: Spontaneous
  Country: US (occurrence: None)
  Receive Date: 20131107
  Receipt Date: 20131107
  Transmission Date: 20140711
  Serious: Yes (Life-Threatening, Disabling)
  Sender: FDA-Public Use
  Company Number: None

PATIENT
  Age: 48 Year
  Sex: Male
  Weight: 103.42 kg

DRUGS (11)
  1. DESMOPRESSIN 0.01% BAUSCH + LOMB [Suspect]
     Indication: HYPOPITUITARISM
     Dosage: 03/05/1992-11/02/2023?50/ ONCE IN EACH TWICE DAILY
     Dates: start: 19920305
  2. DESMOPRESSIN 0.01% BAUSCH + LOMB [Suspect]
     Indication: NEUROGENIC BLADDER
     Dosage: 03/05/1992-11/02/2023?50/ ONCE IN EACH TWICE DAILY
     Dates: start: 19920305
  3. PREDNISONE [Concomitant]
  4. DESMOPRESSIN [Concomitant]
  5. SYNTHROID [Concomitant]
  6. TRIPLEX [Concomitant]
  7. VYTORIN [Concomitant]
  8. TESTESTERONE [Concomitant]
  9. VITAMIN E [Concomitant]
  10. MILK THISLE [Concomitant]
  11. IRON [Concomitant]

REACTIONS (5)
  - Vertigo [None]
  - Parosmia [None]
  - Muscle twitching [None]
  - Dyskinesia [None]
  - Muscular weakness [None]
